FAERS Safety Report 7035585-2 (Version None)
Quarter: 2010Q4

REPORT INFORMATION
  Report Type: 
  Country: None (occurrence: None)
  Receive Date: 20101008
  Receipt Date: 20100927
  Transmission Date: 20110411
  Serious: Yes (Other)
  Sender: FDA-Public Use
  Company Number: BR-PFIZER INC-2010122813

PATIENT
  Age: 65 Year
  Sex: Female

DRUGS (6)
  1. DETRUSITOL LA [Suspect]
     Indication: URINARY INCONTINENCE
     Dosage: 4 MG, 1X/DAY
     Route: 048
     Dates: start: 20070927
  2. PURAN T4 [Concomitant]
     Indication: THYROID DISORDER
     Dosage: UNK
     Dates: start: 19900101
  3. WARFARIN SODIUM [Concomitant]
  4. VALSARTAN [Concomitant]
  5. ALENDRONATE SODIUM [Concomitant]
  6. CALCIUM [Concomitant]

REACTIONS (1)
  - CHROMATURIA [None]
